FAERS Safety Report 22605572 (Version 3)
Quarter: 2023Q4

REPORT INFORMATION
  Report Type: Spontaneous
  Country: JP (occurrence: None)
  Receive Date: 20230615
  Receipt Date: 20231024
  Transmission Date: 20240109
  Serious: Yes (Disabling, Other)
  Sender: FDA-Public Use
  Company Number: 2023A136706

PATIENT
  Age: 82 Year
  Sex: Female
  Weight: 38 kg

DRUGS (1)
  1. IMFINZI [Suspect]
     Active Substance: DURVALUMAB
     Indication: Non-small cell lung cancer
     Route: 041
     Dates: start: 20230428, end: 20230428

REACTIONS (3)
  - Nephropathy toxic [Recovered/Resolved]
  - Radiation pneumonitis [Recovering/Resolving]
  - Thyroid disorder [Recovering/Resolving]

NARRATIVE: CASE EVENT DATE: 20230515
